FAERS Safety Report 16818080 (Version 1)
Quarter: 2019Q3

REPORT INFORMATION
  Report Type: Report from Study
  Country: US (occurrence: US)
  Receive Date: 20190917
  Receipt Date: 20190917
  Transmission Date: 20191005
  Serious: Yes (Death, Other)
  Sender: FDA-Public Use
  Company Number: US-GILEAD-2019-0428576

PATIENT
  Age: 76 Year
  Sex: Male

DRUGS (26)
  1. ZAROXOLYN [Concomitant]
     Active Substance: METOLAZONE
  2. OMEPRAZOLE. [Concomitant]
     Active Substance: OMEPRAZOLE
  3. OCUVITE COMPLETE [Concomitant]
  4. AMBRISENTAN [Suspect]
     Active Substance: AMBRISENTAN
     Indication: PRODUCT USED FOR UNKNOWN INDICATION
     Dosage: 5 MG, QD
     Route: 065
  5. SERTRALINE [Concomitant]
     Active Substance: SERTRALINE HYDROCHLORIDE
  6. SYNTHROID [Concomitant]
     Active Substance: LEVOTHYROXINE SODIUM
  7. BUMETANIDE. [Concomitant]
     Active Substance: BUMETANIDE
  8. COLCHICINE. [Concomitant]
     Active Substance: COLCHICINE
  9. PRADAXA [Concomitant]
     Active Substance: DABIGATRAN ETEXILATE MESYLATE
  10. LANTUS [Concomitant]
     Active Substance: INSULIN GLARGINE
  11. LISINOPRIL. [Concomitant]
     Active Substance: LISINOPRIL
  12. POTASSIUM CHLORIDE. [Concomitant]
     Active Substance: POTASSIUM CHLORIDE
  13. METANX [Concomitant]
     Active Substance: LEVOMEFOLATE CALCIUM\METHYLCOBALAMIN\PYRIDOXAL PHOSPHATE ANHYDROUS
  14. ZOCOR [Concomitant]
     Active Substance: SIMVASTATIN
  15. ISOSORBIDE MONONITRATE. [Concomitant]
     Active Substance: ISOSORBIDE MONONITRATE
  16. LOVAZA [Concomitant]
     Active Substance: OMEGA-3-ACID ETHYL ESTERS
  17. ALLOPURINOL. [Concomitant]
     Active Substance: ALLOPURINOL
  18. VICTOZA [Concomitant]
     Active Substance: LIRAGLUTIDE
  19. LORAZEPAM. [Concomitant]
     Active Substance: LORAZEPAM
  20. MECLIZINE HCL [Concomitant]
     Active Substance: MECLIZINE HYDROCHLORIDE
  21. BUSPIRONE [Concomitant]
     Active Substance: BUSPIRONE HYDROCHLORIDE
  22. AGGRENOX [Concomitant]
     Active Substance: ASPIRIN\DIPYRIDAMOLE
  23. GABAPENTIN. [Concomitant]
     Active Substance: GABAPENTIN
  24. BETAPACE [Concomitant]
     Active Substance: SOTALOL HYDROCHLORIDE
  25. LINZESS [Concomitant]
     Active Substance: LINACLOTIDE
  26. HYDROCODONE/ACETAMINOPHEN [Concomitant]
     Active Substance: ACETAMINOPHEN\HYDROCODONE

REACTIONS (1)
  - Death [Fatal]

NARRATIVE: CASE EVENT DATE: 20190911
